FAERS Safety Report 7313612-2 (Version None)
Quarter: 2011Q1

REPORT INFORMATION
  Report Type: 
  Country: None (occurrence: None)
  Receive Date: 20110223
  Receipt Date: 20110223
  Transmission Date: 20110831
  Serious: No
  Sender: FDA-Public Use
  Company Number: None

PATIENT
  Sex: Female
  Weight: 70.5 kg

DRUGS (1)
  1. CAREONE ALCOHOL SWABS 70% V/V ISOPROPYL ALCOHOL TRIAD GROUP [Suspect]

REACTIONS (2)
  - ERYTHEMA [None]
  - PAIN IN EXTREMITY [None]
